FAERS Safety Report 22163437 (Version 2)
Quarter: 2023Q2

REPORT INFORMATION
  Report Type: Spontaneous
  Country: FR (occurrence: FR)
  Receive Date: 20230401
  Receipt Date: 20230411
  Transmission Date: 20230722
  Serious: Yes (Hospitalization)
  Sender: FDA-Public Use
  Company Number: FR-Accord-305608

PATIENT
  Age: 38 Year
  Sex: Female

DRUGS (16)
  1. QUETIAPINE [Suspect]
     Active Substance: QUETIAPINE
     Indication: Major depression
     Dates: start: 20220422, end: 20220423
  2. ETONOGESTREL [Concomitant]
     Active Substance: ETONOGESTREL
     Indication: Contraceptive implant
     Dates: start: 2021
  3. PAROXETINE [Concomitant]
     Active Substance: PAROXETINE
     Indication: Depressive symptom
     Dates: start: 20220423, end: 20220423
  4. DIAZEPAM [Concomitant]
     Active Substance: DIAZEPAM
     Indication: Major depression
     Dates: start: 20220426, end: 20220426
  5. CYAMEMAZINE [Concomitant]
     Active Substance: CYAMEMAZINE
     Indication: Major depression
     Dates: start: 20220422, end: 20220423
  6. ZOPICLONE [Concomitant]
     Active Substance: ZOPICLONE
     Indication: Major depression
     Dates: start: 20220528
  7. PAROXETINE [Concomitant]
     Active Substance: PAROXETINE
     Indication: Depressive symptom
     Dates: start: 20220426
  8. ZOPICLONE [Concomitant]
     Active Substance: ZOPICLONE
     Indication: Major depression
     Dates: start: 20220422, end: 20220423
  9. ZOPICLONE [Concomitant]
     Active Substance: ZOPICLONE
     Indication: Major depression
     Dates: start: 20220426, end: 20220426
  10. QUETIAPINE [Suspect]
     Active Substance: QUETIAPINE
     Indication: Major depression
     Dates: start: 202203
  11. QUETIAPINE [Suspect]
     Active Substance: QUETIAPINE
     Indication: Major depression
     Dates: start: 20220426, end: 20220426
  12. QUETIAPINE [Suspect]
     Active Substance: QUETIAPINE
     Indication: Major depression
     Dates: start: 20220528, end: 20220528
  13. DIAZEPAM [Concomitant]
     Active Substance: DIAZEPAM
     Indication: Major depression
     Dates: start: 20220422, end: 20220423
  14. DIAZEPAM [Concomitant]
     Active Substance: DIAZEPAM
     Indication: Major depression
     Dates: start: 20220528
  15. CYAMEMAZINE [Concomitant]
     Active Substance: CYAMEMAZINE
     Indication: Major depression
     Dates: start: 20220528
  16. CYAMEMAZINE [Concomitant]
     Active Substance: CYAMEMAZINE
     Indication: Major depression
     Dates: start: 20220426, end: 20220426

REACTIONS (1)
  - Torticollis [Unknown]

NARRATIVE: CASE EVENT DATE: 20220528
